FAERS Safety Report 8472807-5 (Version None)
Quarter: 2012Q2

REPORT INFORMATION
  Report Type: 
  Country: None (occurrence: None)
  Receive Date: 20120627
  Receipt Date: 20120622
  Transmission Date: 20120825
  Serious: No
  Sender: FDA-Public Use
  Company Number: US-PFIZER INC-2012145058

PATIENT
  Sex: Female
  Weight: 57 kg

DRUGS (3)
  1. CLEOCIN HYDROCHLORIDE [Suspect]
     Indication: INFECTION
     Dosage: THREE 150 MG CAPSULE, 3X/DAY
     Route: 048
     Dates: start: 20120610, end: 20120617
  2. CLEOCIN HYDROCHLORIDE [Suspect]
     Indication: CELLULITIS
  3. MUPIROCIN [Concomitant]
     Indication: INFECTION
     Dosage: UNK

REACTIONS (9)
  - BURNING SENSATION [None]
  - COUGH [None]
  - DYSPHONIA [None]
  - APHONIA [None]
  - SPEECH DISORDER [None]
  - DIARRHOEA [None]
  - OROPHARYNGEAL PAIN [None]
  - MALAISE [None]
  - LARYNGITIS [None]
